FAERS Safety Report 8236519-5 (Version None)
Quarter: 2012Q1

REPORT INFORMATION
  Report Type: 
  Country: None (occurrence: None)
  Receive Date: 20120327
  Receipt Date: 20120312
  Transmission Date: 20120608
  Serious: Yes (Disabling)
  Sender: FDA-Public Use
  Company Number: IN-SANOFI-AVENTIS-2012SA016727

PATIENT
  Age: 52 Year
  Sex: Male
  Weight: 64 kg

DRUGS (4)
  1. ALLEGRA [Suspect]
     Route: 048
     Dates: start: 20120203, end: 20120205
  2. ATORVASTATIN [Concomitant]
     Route: 048
  3. CLOPIDOGREL [Concomitant]
     Route: 048
  4. ECOSPRIN [Concomitant]
     Route: 048

REACTIONS (2)
  - SUPRAVENTRICULAR EXTRASYSTOLES [None]
  - ATRIAL FIBRILLATION [None]
